FAERS Safety Report 6400130-9 (Version None)
Quarter: 2009Q4

REPORT INFORMATION
  Report Type: 
  Country: None (occurrence: None)
  Receive Date: 20091014
  Receipt Date: 20091006
  Transmission Date: 20100525
  Serious: Yes (Disabling)
  Sender: FDA-Public Use
  Company Number: BR-BAYER-200810719LA

PATIENT
  Age: 49 Year
  Sex: Female

DRUGS (8)
  1. BETAFERON [Suspect]
     Indication: MULTIPLE SCLEROSIS
     Route: 058
     Dates: start: 20071214
  2. BETAFERON [Suspect]
     Route: 058
  3. BETAFERON [Suspect]
     Dosage: BETAJECT
     Route: 058
  4. PHYTOTHERAPIC [Concomitant]
     Indication: INSOMNIA
     Route: 048
     Dates: start: 19990101
  5. PREDNISONE [Concomitant]
     Indication: GAIT DISTURBANCE
     Dosage: 1/4 OF A TABLET
     Route: 048
     Dates: start: 20081101, end: 20090501
  6. PREDNISONE [Concomitant]
     Dosage: TOTAL DAILY DOSE: 5 MG
     Route: 048
     Dates: start: 20080201, end: 20080211
  7. PREDNISONE [Concomitant]
     Dosage: TOTAL DAILY DOSE: 20 MG
     Route: 048
     Dates: start: 20071201, end: 20071201
  8. PREDNISONE [Concomitant]
     Dosage: AS USED: 20 MG
     Route: 048
     Dates: start: 20071201, end: 20071201

REACTIONS (13)
  - ASTHENIA [None]
  - EMOTIONAL DISTRESS [None]
  - HEADACHE [None]
  - HYPERHIDROSIS [None]
  - HYPOAESTHESIA [None]
  - INJECTION SITE HAEMATOMA [None]
  - INJECTION SITE PAIN [None]
  - INJECTION SITE PRURITUS [None]
  - MOBILITY DECREASED [None]
  - MUSCLE SPASMS [None]
  - MUSCULAR WEAKNESS [None]
  - SKIN ODOUR ABNORMAL [None]
  - WEIGHT INCREASED [None]
